FAERS Safety Report 18609180 (Version 1)
Quarter: 2020Q4

REPORT INFORMATION
  Report Type: Spontaneous
  Country: US (occurrence: US)
  Receive Date: 20201214
  Receipt Date: 20201214
  Transmission Date: 20210114
  Serious: Yes (Other)
  Sender: FDA-Public Use
  Company Number: US-ROCHE-2729559

PATIENT
  Sex: Female

DRUGS (1)
  1. ROZLYTREK [Suspect]
     Active Substance: ENTRECTINIB
     Indication: LUNG NEOPLASM MALIGNANT
     Dosage: 400 MG DAILY; ONGOING: YES
     Route: 065
     Dates: start: 20201013

REACTIONS (8)
  - Pain [Unknown]
  - Paraesthesia [Unknown]
  - Headache [Unknown]
  - Pain of skin [Unknown]
  - Pneumothorax [Unknown]
  - Asthenia [Unknown]
  - Burning sensation [Unknown]
  - Peripheral swelling [Recovered/Resolved]
